FAERS Safety Report 9478070 (Version 1)
Quarter: 2013Q3

REPORT INFORMATION
  Report Type: Spontaneous
  Country: US (occurrence: US)
  Receive Date: 20130827
  Receipt Date: 20130827
  Transmission Date: 20140515
  Serious: No
  Sender: FDA-Public Use
  Company Number: US-009507513-1308USA011950

PATIENT
  Age: 41 Year
  Sex: Female
  Weight: 44.44 kg

DRUGS (2)
  1. NEXPLANON [Suspect]
     Indication: CONTRACEPTION
     Dosage: 1 ROD UP TO THREE
     Route: 058
     Dates: start: 20120612
  2. TYLENOL [Concomitant]
     Indication: HEADACHE
     Dosage: UNK, PRN

REACTIONS (2)
  - Pain in extremity [Unknown]
  - Implant site pain [Unknown]
